FAERS Safety Report 5532470-X (Version None)
Quarter: 2007Q4

REPORT INFORMATION
  Report Type: 
  Country: None (occurrence: None)
  Receive Date: 20071203
  Receipt Date: 20071121
  Transmission Date: 20080405
  Serious: Yes (Other)
  Sender: FDA-Public Use
  Company Number: ES-PFIZER INC-2007097708

PATIENT
  Age: 43 Year
  Sex: Female

DRUGS (4)
  1. NEURONTIN [Suspect]
     Route: 048
  2. DIAZEPAM [Suspect]
     Route: 048
  3. BACLOFEN [Suspect]
     Dosage: DAILY DOSE:.05MG
     Route: 037
  4. DYSPORT [Suspect]
     Indication: MUSCLE SPASTICITY
     Dosage: DAILY DOSE:1000I.U.-TEXT:DAILY

REACTIONS (2)
  - STRABISMUS [None]
  - VISUAL DISTURBANCE [None]
